FAERS Safety Report 15460383 (Version 1)
Quarter: 2018Q4

REPORT INFORMATION
  Report Type: Spontaneous
  Country: CN (occurrence: CN)
  Receive Date: 20181003
  Receipt Date: 20181003
  Transmission Date: 20190204
  Serious: Yes (Hospitalization, Other)
  Sender: FDA-Public Use
  Company Number: CN-SA-2018SA269313

PATIENT
  Age: 60 Year
  Sex: Female

DRUGS (7)
  1. SODIUM CHLORIDE. [Suspect]
     Active Substance: SODIUM CHLORIDE
     Dosage: 500 MG
  2. AMIODARONE HYDROCHLORIDE. [Suspect]
     Active Substance: AMIODARONE HYDROCHLORIDE
     Dosage: 5 MG/MIN
  3. ASPIRIN (E.C.) [Concomitant]
     Active Substance: ASPIRIN
     Indication: ANTIPLATELET THERAPY
     Dosage: 1 TABLET/DAY
     Route: 065
  4. GLUCOSE [Concomitant]
     Active Substance: DEXTROSE
     Dosage: 5% GLUCOSE, 20 ML
  5. IRBESARTAN. [Suspect]
     Active Substance: IRBESARTAN
     Indication: HYPERTENSION
     Dosage: ONCE IN THE MORNING AND THE ANOTHER AT NIGHT
     Route: 048
  6. METHYLPREDNISOLONE SODIUM SUCCINATE. [Suspect]
     Active Substance: METHYLPREDNISOLONE SODIUM SUCCINATE
     Dosage: 80 MG
     Route: 042
  7. PROPAFENONE. [Concomitant]
     Active Substance: PROPAFENONE
     Dosage: 150MG, Q8H
     Route: 065

REACTIONS (15)
  - Dysphonia [Recovered/Resolved]
  - Erythema [Recovered/Resolved]
  - Palpitations [Recovered/Resolved]
  - Chest discomfort [Recovered/Resolved]
  - Respiration abnormal [Recovered/Resolved]
  - Anaphylactic shock [Recovering/Resolving]
  - Atrial fibrillation [Recovered/Resolved]
  - Peripheral coldness [Recovered/Resolved]
  - Hot flush [Recovered/Resolved]
  - Hyperhidrosis [Recovered/Resolved]
  - Urinary incontinence [Recovered/Resolved]
  - Cyanosis [Recovered/Resolved]
  - Condition aggravated [Recovered/Resolved]
  - Loss of consciousness [Recovered/Resolved]
  - Hypertension [Recovered/Resolved]
